FAERS Safety Report 18946614 (Version 2)
Quarter: 2021Q3

REPORT INFORMATION
  Report Type: Report from Study
  Country: ES (occurrence: ES)
  Receive Date: 20210226
  Receipt Date: 20210707
  Transmission Date: 20211014
  Serious: Yes (Hospitalization)
  Sender: FDA-Public Use
  Company Number: ES-JNJFOC-20210231655

PATIENT
  Sex: Male
  Weight: 79 kg

DRUGS (11)
  1. BOSENTAN. [Suspect]
     Active Substance: BOSENTAN
     Route: 048
     Dates: start: 20181029
  2. BOSENTAN. [Suspect]
     Active Substance: BOSENTAN
     Route: 048
     Dates: start: 20180803
  3. ACETYLSALICYLIC ACID [Concomitant]
     Active Substance: ASPIRIN
     Indication: PROPHYLAXIS
     Route: 048
     Dates: start: 20130412
  4. BOSENTAN. [Suspect]
     Active Substance: BOSENTAN
     Route: 048
     Dates: start: 20180907, end: 20181022
  5. OMEPRAZOLE. [Concomitant]
     Active Substance: OMEPRAZOLE
     Indication: PROPHYLAXIS
     Dates: start: 20181113, end: 20181122
  6. METFORMINA [METFORMIN] [Concomitant]
     Active Substance: METFORMIN HYDROCHLORIDE
     Indication: TYPE 2 DIABETES MELLITUS
     Route: 048
     Dates: start: 20110921
  7. ENALAPRIL [Concomitant]
     Active Substance: ENALAPRIL
     Indication: HYPERTENSION
     Route: 048
     Dates: start: 20100925
  8. ALOPURINOL [Concomitant]
     Active Substance: ALLOPURINOL
     Indication: GOUT
     Route: 048
     Dates: start: 20070806
  9. OMEPRAZOLE. [Concomitant]
     Active Substance: OMEPRAZOLE
     Route: 048
     Dates: start: 20110921
  10. DAFLON [DIOSMIN;HESPERIDIN] [Concomitant]
     Active Substance: DIOSMIN\HESPERIDIN
     Indication: PERIPHERAL VENOUS DISEASE
     Route: 048
     Dates: start: 20090723
  11. BOSENTAN. [Suspect]
     Active Substance: BOSENTAN
     Indication: PULMONARY ARTERIAL HYPERTENSION
     Route: 048
     Dates: start: 20190114

REACTIONS (3)
  - Respiratory failure [Recovering/Resolving]
  - Urinary retention [Unknown]
  - Pneumonia aspiration [Recovering/Resolving]
